FAERS Safety Report 5449376-7 (Version None)
Quarter: 2007Q3

REPORT INFORMATION
  Report Type: 
  Country: None (occurrence: None)
  Receive Date: 20070911
  Receipt Date: 20070904
  Transmission Date: 20080115
  Serious: Yes (Hospitalization)
  Sender: FDA-Public Use
  Company Number: PL-ABBOTT-07P-129-0415771-00

PATIENT
  Sex: Male
  Weight: 14.6 kg

DRUGS (1)
  1. KLACID I.V. [Suspect]
     Indication: PNEUMONIA
     Route: 042
     Dates: start: 20070726, end: 20070729

REACTIONS (1)
  - URTICARIA [None]
